FAERS Safety Report 16050195 (Version 1)
Quarter: 2019Q1

REPORT INFORMATION
  Report Type: Spontaneous
  Country: US (occurrence: US)
  Receive Date: 20190308
  Receipt Date: 20190308
  Transmission Date: 20190418
  Serious: No
  Sender: FDA-Public Use
  Company Number: US-JNJFOC-20190228512

PATIENT
  Sex: Female
  Weight: 64.41 kg

DRUGS (1)
  1. TRAMADOL HYDROCHLORIDE. [Suspect]
     Active Substance: TRAMADOL HYDROCHLORIDE
     Indication: PAIN
     Route: 048

REACTIONS (4)
  - Dizziness [Unknown]
  - Nausea [Unknown]
  - Constipation [Unknown]
  - Abdominal discomfort [Unknown]
